FAERS Safety Report 7283275-3 (Version None)
Quarter: 2011Q1

REPORT INFORMATION
  Report Type: 
  Country: None (occurrence: None)
  Receive Date: 20110209
  Receipt Date: 20110207
  Transmission Date: 20110831
  Serious: Yes (Death)
  Sender: FDA-Public Use
  Company Number: ES-ROCHE-758268

PATIENT
  Sex: Male

DRUGS (2)
  1. XELODA [Suspect]
     Indication: COLON CANCER STAGE III
     Route: 065
  2. OXALIPLATIN [Suspect]
     Indication: COLON CANCER STAGE III
     Route: 065

REACTIONS (1)
  - TOXICITY TO VARIOUS AGENTS [None]
